FAERS Safety Report 4415536-7 (Version None)
Quarter: 2004Q2

REPORT INFORMATION
  Report Type: 
  Country: None (occurrence: None)
  Receive Date: 20040630
  Receipt Date: 20031124
  Transmission Date: 20050107
  Serious: Yes (Other)
  Sender: FDA-Public Use
  Company Number: 2003120227

PATIENT
  Age: 8 Year
  Sex: Male
  Weight: 27.2158 kg

DRUGS (1)
  1. ZOLOFT [Suspect]
     Indication: OBSESSIVE-COMPULSIVE DISORDER
     Dosage: 25 MG (DAILY), ORAL
     Route: 048
     Dates: start: 20031001, end: 20031101

REACTIONS (1)
  - CONVULSION [None]
